FAERS Safety Report 15993589 (Version 2)
Quarter: 2019Q2

REPORT INFORMATION
  Report Type: Spontaneous
  Country: JP (occurrence: JP)
  Receive Date: 20190222
  Receipt Date: 20190405
  Transmission Date: 20190711
  Serious: Yes (Life-Threatening)
  Sender: FDA-Public Use
  Company Number: JP-ROCHE-2270996

PATIENT
  Age: 48 Year
  Sex: Male
  Weight: 73 kg

DRUGS (10)
  1. DECADRON [Suspect]
     Active Substance: DEXAMETHASONE
     Indication: PRODUCT USED FOR UNKNOWN INDICATION
     Route: 048
     Dates: start: 20190116, end: 20190118
  2. DECADRON [Suspect]
     Active Substance: DEXAMETHASONE
     Indication: PRODUCT USED FOR UNKNOWN INDICATION
     Route: 042
     Dates: start: 20190115, end: 20190205
  3. PROMAC (JAPAN) [Concomitant]
     Route: 048
  4. EMEND [Concomitant]
     Active Substance: APREPITANT
     Route: 048
     Dates: start: 20190115, end: 20190209
  5. KYTRIL [Concomitant]
     Active Substance: GRANISETRON HYDROCHLORIDE
     Route: 041
     Dates: start: 20190115, end: 20190205
  6. PRIMPERAN [Concomitant]
     Active Substance: METOCLOPRAMIDE HYDROCHLORIDE
     Route: 048
  7. XELODA [Suspect]
     Active Substance: CAPECITABINE
     Indication: COLON CANCER
     Dosage: 2 WEEKS ADMINISTARTION FOLLOWED BY 1 WEEK REST
     Route: 048
     Dates: start: 20190115, end: 20190129
  8. XELODA [Suspect]
     Active Substance: CAPECITABINE
     Dosage: 2 WEEKS ADMINISTARTION FOLLOWED BY 1 WEEK REST
     Route: 048
     Dates: start: 20190205, end: 20190209
  9. ELPLAT [Suspect]
     Active Substance: OXALIPLATIN
     Indication: COLON CANCER
     Route: 041
  10. CALONAL [Concomitant]
     Active Substance: ACETAMINOPHEN
     Route: 048

REACTIONS (2)
  - Metabolic acidosis [Unknown]
  - Hyperglycaemia [Recovered/Resolved]

NARRATIVE: CASE EVENT DATE: 20190215
